FAERS Safety Report 25333543 (Version 1)
Quarter: 2025Q2

REPORT INFORMATION
  Report Type: Spontaneous
  Country: CN (occurrence: CN)
  Receive Date: 20250520
  Receipt Date: 20250520
  Transmission Date: 20250717
  Serious: Yes (Hospitalization, Other)
  Sender: BEIGENE
  Company Number: CN-BEIGENE-BGN-2025-007687

PATIENT
  Age: 82 Year
  Weight: 52 kg

DRUGS (10)
  1. TISLELIZUMAB [Suspect]
     Active Substance: TISLELIZUMAB
     Indication: Lung carcinoma cell type unspecified recurrent
     Dosage: 200 MILLIGRAM, Q3WK PUMP IN FOR 3 DAYS OF TREATMENT
  2. TISLELIZUMAB [Suspect]
     Active Substance: TISLELIZUMAB
     Dosage: 200 MILLIGRAM, Q3WK PUMP IN FOR 3 DAYS OF TREATMENT
  3. TISLELIZUMAB [Suspect]
     Active Substance: TISLELIZUMAB
  4. TISLELIZUMAB [Suspect]
     Active Substance: TISLELIZUMAB
  5. DOCETAXEL [Suspect]
     Active Substance: DOCETAXEL
     Indication: Lung carcinoma cell type unspecified recurrent
     Route: 041
  6. DOCETAXEL [Suspect]
     Active Substance: DOCETAXEL
  7. ENDOSTATIN [Suspect]
     Active Substance: ENDOSTATIN
     Indication: Lung carcinoma cell type unspecified recurrent
     Dosage: 210 MILLIGRAM, Q3WK PUMP IN FOR 3 DAYS OF TREATMENT
  8. ENDOSTATIN [Suspect]
     Active Substance: ENDOSTATIN
  9. PEMETREXED [Concomitant]
     Active Substance: PEMETREXED
     Indication: Lung carcinoma cell type unspecified recurrent
     Dosage: 0.7 GRAM, Q3WK PUMP IN FOR 3 DAYS OF TREATMENT
  10. DENOSUMAB [Concomitant]
     Active Substance: DENOSUMAB
     Indication: Lung carcinoma cell type unspecified recurrent
     Dosage: 210 MILLIGRAM, Q4WK

REACTIONS (4)
  - Neoplasm progression [Unknown]
  - Arthralgia [Unknown]
  - Nausea [Recovering/Resolving]
  - Gastrooesophageal reflux disease [Recovering/Resolving]
